FAERS Safety Report 13446102 (Version 14)
Quarter: 2017Q3

REPORT INFORMATION
  Report Type: Spontaneous
  Country: US (occurrence: US)
  Receive Date: 20170417
  Receipt Date: 20170825
  Transmission Date: 20171127
  Serious: No
  Sender: FDA-Public Use
  Company Number: PHEH2017US010561

PATIENT
  Sex: Female

DRUGS (3)
  1. COMBIGAN [Suspect]
     Active Substance: BRIMONIDINE TARTRATE\TIMOLOL MALEATE
     Indication: INTRAOCULAR PRESSURE TEST ABNORMAL
     Route: 047
  2. SIMBRINZA [Suspect]
     Active Substance: BRIMONIDINE TARTRATE\BRINZOLAMIDE
     Indication: INTRAOCULAR PRESSURE TEST ABNORMAL
     Dosage: 2 GTT, QD
     Route: 047
  3. TRAVATAN Z [Concomitant]
     Active Substance: TRAVOPROST
     Indication: INTRAOCULAR PRESSURE TEST ABNORMAL
     Dosage: (AT NIGHT)
     Route: 047

REACTIONS (10)
  - Fear [Unknown]
  - Product quality issue [Unknown]
  - Visual impairment [Unknown]
  - Eyelash thickening [Unknown]
  - Ocular hyperaemia [Unknown]
  - Medication residue present [Unknown]
  - Drug ineffective [Unknown]
  - Liquid product physical issue [Unknown]
  - Ocular icterus [Unknown]
  - Vision blurred [Not Recovered/Not Resolved]
